FAERS Safety Report 24746686 (Version 1)
Quarter: 2024Q4

REPORT INFORMATION
  Report Type: Spontaneous
  Country: US (occurrence: US)
  Receive Date: 20241218
  Receipt Date: 20241218
  Transmission Date: 20250114
  Serious: No
  Sender: ALEXION PHARMACEUTICALS
  Company Number: US-AstraZeneca-CH-00770295A

PATIENT

DRUGS (4)
  1. FARXIGA [Suspect]
     Active Substance: DAPAGLIFLOZIN PROPANEDIOL
     Route: 065
  2. FARXIGA [Suspect]
     Active Substance: DAPAGLIFLOZIN PROPANEDIOL
     Route: 065
  3. FARXIGA [Suspect]
     Active Substance: DAPAGLIFLOZIN PROPANEDIOL
     Route: 065
  4. FARXIGA [Suspect]
     Active Substance: DAPAGLIFLOZIN PROPANEDIOL
     Route: 065

REACTIONS (10)
  - Ocular discomfort [Unknown]
  - Dizziness [Unknown]
  - Headache [Unknown]
  - Patient uncooperative [Unknown]
  - Therapy cessation [Unknown]
  - Therapy cessation [Unknown]
  - Visual impairment [Unknown]
  - Glycosylated haemoglobin [Unknown]
  - Product use complaint [Unknown]
  - Cardiac pacemaker insertion [Unknown]
